FAERS Safety Report 10532878 (Version 2)
Quarter: 2014Q4

REPORT INFORMATION
  Report Type: Spontaneous
  Country: CN (occurrence: CN)
  Receive Date: 20141022
  Receipt Date: 20141107
  Transmission Date: 20150529
  Serious: Yes (Hospitalization)
  Sender: FDA-Public Use
  Company Number: PHHY2014CN136517

PATIENT
  Age: 74 Year
  Sex: Male

DRUGS (1)
  1. ACLASTA [Suspect]
     Active Substance: ZOLEDRONIC ACID
     Indication: OSTEOPOROSIS
     Dosage: 100 ML: 5 ML
     Route: 042
     Dates: start: 20141016

REACTIONS (3)
  - Swelling face [Unknown]
  - Arthralgia [Unknown]
  - Confusional state [Unknown]

NARRATIVE: CASE EVENT DATE: 20141017
